FAERS Safety Report 6371665-2 (Version None)
Quarter: 2009Q3

REPORT INFORMATION
  Report Type: 
  Country: None (occurrence: None)
  Receive Date: 20090923
  Receipt Date: 20080728
  Transmission Date: 20100115
  Serious: No
  Sender: FDA-Public Use
  Company Number: US-ASTRAZENECA-2008UW03396

PATIENT
  Age: 52 Year
  Sex: Female
  Weight: 80.7 kg

DRUGS (9)
  1. SEROQUEL [Suspect]
     Indication: BIPOLAR DISORDER
     Route: 048
     Dates: start: 20070201
  2. SEROQUEL [Suspect]
     Indication: SLEEP DISORDER
     Route: 048
     Dates: start: 20070201
  3. SEROQUEL [Suspect]
     Route: 048
  4. SEROQUEL [Suspect]
     Route: 048
  5. SEROQUEL [Suspect]
     Route: 048
     Dates: start: 20080601
  6. SEROQUEL [Suspect]
     Route: 048
     Dates: start: 20080601
  7. ZETIA [Concomitant]
  8. PRILOSEC [Concomitant]
  9. MEVACOR [Concomitant]

REACTIONS (11)
  - ABDOMINAL PAIN [None]
  - ALOPECIA [None]
  - BLOOD CHOLESTEROL INCREASED [None]
  - BLOOD TRIGLYCERIDES INCREASED [None]
  - DEHYDROEPIANDROSTERONE INCREASED [None]
  - DYSPNOEA [None]
  - FOOD CRAVING [None]
  - HYPOAESTHESIA [None]
  - RASH [None]
  - WEIGHT DECREASED [None]
  - WEIGHT INCREASED [None]
